FAERS Safety Report 4674889-5 (Version None)
Quarter: 2005Q2

REPORT INFORMATION
  Report Type: 
  Country: None (occurrence: None)
  Receive Date: 20050525
  Receipt Date: 20050516
  Transmission Date: 20051028
  Serious: Yes (Disabling)
  Sender: FDA-Public Use
  Company Number: GXKR2005GB01087

PATIENT
  Age: 71 Year
  Sex: Female

DRUGS (12)
  1. FLOXACILLIN SODIUM [Suspect]
     Dosage: 2 G, QID, INTRAVENOUS
     Route: 042
     Dates: start: 20050421, end: 20050423
  2. AMOXICILLIN TRIHYDRATE [Suspect]
     Dosage: 2 G, Q4H, INTRAVENOUS
     Route: 042
     Dates: start: 20050423
  3. GENTAMICIN [Suspect]
     Dosage: SEE IMAGE, INTRAVENOUS
     Route: 042
     Dates: start: 20050421
  4. GENTAMICIN [Suspect]
     Dosage: SEE IMAGE, INTRAVENOUS
     Route: 042
     Dates: start: 20050426
  5. AMLODIPINE [Concomitant]
  6. LANSOPRAZOLE [Concomitant]
  7. WARFARIN SODIUM [Concomitant]
  8. ASPIRIN [Concomitant]
  9. CLOPIDOGREL BISULFATE [Concomitant]
  10. METOCLOPRAMIDE [Concomitant]
  11. ATORVASTATIN CALCIUM [Concomitant]
  12. PERINDOPRIL (PERINDOPRIL) [Concomitant]

REACTIONS (2)
  - ENDOCARDITIS [None]
  - RENAL FAILURE ACUTE [None]
